FAERS Safety Report 7107933-6 (Version None)
Quarter: 2010Q4

REPORT INFORMATION
  Report Type: 
  Country: None (occurrence: None)
  Receive Date: 20101117
  Receipt Date: 20101110
  Transmission Date: 20110411
  Serious: Yes (Death, Hospitalization, Other)
  Sender: FDA-Public Use
  Company Number: JP-BAYER-200912911BYL

PATIENT
  Age: 63 Year
  Sex: Male
  Weight: 50 kg

DRUGS (17)
  1. NEXAVAR [Suspect]
     Indication: HEPATIC NEOPLASM MALIGNANT
     Dosage: TOTAL DAILY DOSE: 800 MG  UNIT DOSE: 200 MG
     Route: 048
     Dates: start: 20090702, end: 20090729
  2. NEXAVAR [Suspect]
     Dosage: TOTAL DAILY DOSE: 400 MG  UNIT DOSE: 200 MG
     Route: 048
     Dates: start: 20090805
  3. NEXAVAR [Suspect]
     Dosage: TOTAL DAILY DOSE: 800 MG  UNIT DOSE: 200 MG
     Route: 048
     Dates: start: 20090826, end: 20100610
  4. ALOSITOL [Concomitant]
     Dosage: SINCE BEFORE ADMINISTRATION
     Route: 048
  5. PREDNISOLONE [Concomitant]
     Dosage: SINCE BEFORE ADMINISTRATION
     Route: 048
  6. ALDACTONE [Concomitant]
     Dosage: SINCE BEFORE ADMINISTRATION
     Route: 048
  7. TAKEPRON [Concomitant]
     Dosage: SINCE BEFORE ADMINISTRATION
     Route: 048
  8. LASIX [Concomitant]
     Dosage: SINCE BEFORE ADMINISTRATION
     Route: 048
  9. URSO 250 [Concomitant]
     Dosage: SINCE BEFORE ADMINISTRATION
     Route: 048
  10. BIOFERMIN [Concomitant]
     Dosage: SINCE BEFORE ADMINISTRATION
     Route: 048
  11. LIVACT [Concomitant]
     Dosage: SINCE BEFORE ADMINISTRATION
     Route: 048
  12. GLAKAY [Concomitant]
     Dosage: SINCE BEFORE ADMINISTRATION
     Route: 048
  13. JUVELA [Concomitant]
     Dosage: SINCE BEFORE ADMINIDTRATION
     Route: 048
  14. FRANDOL S [Concomitant]
     Dosage: SINCE BEFORE ADMINISTRATION
     Route: 062
  15. PERSANTIN [Concomitant]
     Dosage: SINCE BEFORE ADMINIDTRATION
     Route: 048
  16. LOPEMIN [Concomitant]
     Dosage: SINCE BEFORE ADMINISTRATION
     Route: 048
  17. TANNALBIN [Concomitant]
     Dosage: SINCE BEFORE ADMINISTRATION
     Route: 048

REACTIONS (5)
  - HEPATIC FUNCTION ABNORMAL [None]
  - HEPATIC NEOPLASM MALIGNANT [None]
  - MALAISE [None]
  - PALMAR-PLANTAR ERYTHRODYSAESTHESIA SYNDROME [None]
  - PLATELET COUNT DECREASED [None]
